FAERS Safety Report 4654396-6 (Version None)
Quarter: 2005Q2

REPORT INFORMATION
  Report Type: 
  Country: None (occurrence: None)
  Receive Date: 20050506
  Receipt Date: 20050427
  Transmission Date: 20051028
  Serious: Yes (Hospitalization)
  Sender: FDA-Public Use
  Company Number: US-SOLVAY-00205001382

PATIENT
  Age: 18162 Day
  Sex: Female
  Weight: 101 kg

DRUGS (8)
  1. ESTRATEST H.S. [Suspect]
     Indication: HORMONE REPLACEMENT THERAPY
     Dosage: DAILY DOSE: 1 DOSAGE FORM
     Route: 048
     Dates: start: 20050405, end: 20050420
  2. ESTRATEST H.S. [Suspect]
     Dosage: DAILY DOSE: 1 DOSAGE FORM
     Route: 048
     Dates: start: 20050401
  3. TYLENOL PM [Concomitant]
     Indication: INSOMNIA
     Dosage: DAILY DOSE: 1 DOSAGE FORM
     Route: 048
     Dates: start: 20030101
  4. DAYPRO [Concomitant]
     Indication: OSTEOARTHRITIS
     Dosage: DAILY DOSE: 600 MILLIGRAM(S)
     Route: 048
     Dates: start: 20010101
  5. MOTRIN [Concomitant]
     Indication: HEADACHE
     Dosage: DAILY DOSE: 800 MILLIGRAM(S)
     Route: 048
     Dates: start: 20030101
  6. CALCIUM GLUCONATE [Concomitant]
     Indication: NUTRITIONAL SUPPORT
     Dosage: DAILY DOSE: 1000 MILLIGRAM(S)
     Route: 048
     Dates: start: 20040901
  7. PRILOSEC [Concomitant]
     Indication: GASTROOESOPHAGEAL REFLUX DISEASE
     Dosage: DAILY DOSE: 20 MILLIGRAM(S)
     Route: 048
     Dates: start: 19980101
  8. ASPIRIN [Concomitant]
     Indication: BREAST PAIN
     Dosage: DAILY DOSE: 325 MILLIGRAM(S)
     Route: 048
     Dates: start: 20050128

REACTIONS (1)
  - APPENDICITIS [None]
